FAERS Safety Report 22158149 (Version 12)
Quarter: 2024Q1

REPORT INFORMATION
  Report Type: Report from Study
  Country: JP (occurrence: JP)
  Receive Date: 20230330
  Receipt Date: 20240206
  Transmission Date: 20240410
  Serious: Yes (Death, Hospitalization, Other)
  Sender: FDA-Public Use
  Company Number: JP-JNJFOC-20230375179

PATIENT
  Age: 54 Year
  Sex: Male
  Weight: 55 kg

DRUGS (26)
  1. PALIPERIDONE PALMITATE [Suspect]
     Active Substance: PALIPERIDONE PALMITATE
     Indication: Schizophrenia
     Dosage: LEFT GLUTEAL MUSCLE
     Route: 030
     Dates: start: 20220308, end: 20220308
  2. PALIPERIDONE PALMITATE [Suspect]
     Active Substance: PALIPERIDONE PALMITATE
     Indication: Schizophrenia
     Dosage: RIGHT GLUTEAL MUSCLE
     Route: 030
     Dates: start: 20220531, end: 20220531
  3. PALIPERIDONE PALMITATE [Suspect]
     Active Substance: PALIPERIDONE PALMITATE
     Indication: Schizophrenia
     Dosage: LEFT GLUTEAL MUSCLE
     Route: 030
     Dates: start: 20220824, end: 20220824
  4. PALIPERIDONE PALMITATE [Suspect]
     Active Substance: PALIPERIDONE PALMITATE
     Indication: Schizophrenia
     Dosage: RIGHT GLUTEAL MUSCLE
     Route: 030
     Dates: start: 20221116, end: 20221116
  5. PALIPERIDONE PALMITATE [Suspect]
     Active Substance: PALIPERIDONE PALMITATE
     Indication: Schizophrenia
     Dosage: LEFT GLUTEAL MUSCLE
     Route: 030
     Dates: start: 20230207, end: 20230207
  6. VALBENAZINE TOSYLATE [Concomitant]
     Active Substance: VALBENAZINE TOSYLATE
     Indication: Tardive dyskinesia
     Dosage: AT BEDTIME
     Route: 048
     Dates: start: 20220818, end: 20221011
  7. VALBENAZINE TOSYLATE [Concomitant]
     Active Substance: VALBENAZINE TOSYLATE
     Dosage: AT BEDTIME
     Route: 048
     Dates: start: 20230221, end: 20230313
  8. IPRAGLIFLOZIN L-PROLINE [Concomitant]
     Active Substance: IPRAGLIFLOZIN L-PROLINE
     Indication: Type 2 diabetes mellitus
     Dosage: IN THE MORNING
     Route: 048
     Dates: end: 20220417
  9. IPRAGLIFLOZIN L-PROLINE [Concomitant]
     Active Substance: IPRAGLIFLOZIN L-PROLINE
     Dosage: IN THE MORNING
     Route: 048
     Dates: start: 20221227, end: 20230318
  10. BELSOMRA [Concomitant]
     Active Substance: SUVOREXANT
     Indication: Schizophrenia
     Dosage: AT BEDTIME
     Route: 048
     Dates: end: 20220417
  11. BELSOMRA [Concomitant]
     Active Substance: SUVOREXANT
     Dosage: AT BEDTIME
     Route: 048
     Dates: start: 20221227, end: 20230318
  12. PALIPERIDONE PALMITATE [Concomitant]
     Active Substance: PALIPERIDONE PALMITATE
     Indication: Schizophrenia
     Route: 030
     Dates: start: 20211116, end: 20211116
  13. PALIPERIDONE PALMITATE [Concomitant]
     Active Substance: PALIPERIDONE PALMITATE
     Route: 030
     Dates: start: 20211214, end: 20211214
  14. PALIPERIDONE PALMITATE [Concomitant]
     Active Substance: PALIPERIDONE PALMITATE
     Route: 030
     Dates: start: 20220111, end: 20220111
  15. PALIPERIDONE PALMITATE [Concomitant]
     Active Substance: PALIPERIDONE PALMITATE
     Route: 030
     Dates: start: 20220208, end: 20220208
  16. MAGNESIUM OXIDE [Concomitant]
     Active Substance: MAGNESIUM OXIDE
     Indication: Constipation
     Route: 048
     Dates: end: 20221218
  17. VALPROATE SODIUM [Concomitant]
     Active Substance: VALPROATE SODIUM
     Indication: Epilepsy
     Route: 048
     Dates: start: 20220512, end: 20220525
  18. VALPROATE SODIUM [Concomitant]
     Active Substance: VALPROATE SODIUM
     Route: 048
     Dates: start: 20220526, end: 20220608
  19. VALPROATE SODIUM [Concomitant]
     Active Substance: VALPROATE SODIUM
     Route: 048
     Dates: start: 20220609, end: 20220614
  20. VALPROATE SODIUM [Concomitant]
     Active Substance: VALPROATE SODIUM
     Route: 048
     Dates: start: 20220615, end: 20220713
  21. VALPROATE SODIUM [Concomitant]
     Active Substance: VALPROATE SODIUM
     Route: 048
     Dates: start: 20220425, end: 20220511
  22. SODIUM PICOSULFATE MONOHYDRATE [Concomitant]
     Active Substance: SODIUM PICOSULFATE MONOHYDRATE
     Indication: Constipation
     Dosage: IRREGULAR
     Route: 048
     Dates: start: 20221107, end: 20230123
  23. AMPICILLIN AND SULBACTAM [Concomitant]
     Active Substance: AMPICILLIN SODIUM\SULBACTAM SODIUM
     Indication: Bacterial infection
     Dosage: DOSE UNKNOWN
     Route: 065
     Dates: start: 20220405, end: 20220412
  24. VALBENAZINE TOSYLATE [Concomitant]
     Active Substance: VALBENAZINE TOSYLATE
     Indication: Tardive dyskinesia
     Dosage: AT BEDTIME
     Route: 048
     Dates: start: 20220818, end: 20221011
  25. VALBENAZINE TOSYLATE [Concomitant]
     Active Substance: VALBENAZINE TOSYLATE
     Dosage: AT BEDTIME
     Route: 048
     Dates: start: 20230221, end: 20230313
  26. DEPAKENE [Concomitant]
     Active Substance: VALPROIC ACID
     Indication: Loss of consciousness
     Route: 048
     Dates: start: 20220404, end: 20220424

REACTIONS (6)
  - Loss of consciousness [Fatal]
  - Seizure [Recovered/Resolved]
  - Fall [Unknown]
  - Injury [Unknown]
  - Thermal burn [Unknown]
  - Bacterial infection [Recovering/Resolving]

NARRATIVE: CASE EVENT DATE: 20220404
